FAERS Safety Report 8564214-1 (Version None)
Quarter: 2012Q3

REPORT INFORMATION
  Report Type: 
  Country: None (occurrence: None)
  Receive Date: 20120803
  Receipt Date: 20100623
  Transmission Date: 20120928
  Serious: Yes (Other)
  Sender: FDA-Public Use
  Company Number: US-BAYER-200941467NA

PATIENT
  Age: 26 Year
  Sex: Female
  Weight: 68 kg

DRUGS (22)
  1. MULTI-VITAMINS [Concomitant]
     Dates: start: 20060401
  2. MYCOLOG [Concomitant]
     Dosage: 11100000-0.1 U/GM-% CREA. 14-DEC-2004
     Route: 065
  3. ORTHO NOVIN [Concomitant]
     Dosage: 1/35
     Route: 065
  4. CALCIUM [Concomitant]
  5. VITAMIN D [Concomitant]
  6. M.V.I. [Concomitant]
  7. MIRENA [Suspect]
     Route: 015
     Dates: start: 20070417, end: 20070430
  8. EFFEXOR XR [Concomitant]
     Indication: DEPRESSION
     Dosage: 03-NOV-2005
     Route: 048
  9. RANITIDINE HYDROCHLORIDE [Concomitant]
     Dosage: 14-DEC-2004
     Route: 048
  10. WELLBUTRIN XL [Concomitant]
  11. NAVANE [Concomitant]
  12. THIOTHIXENE [Concomitant]
  13. LAMICTAL [Concomitant]
     Dates: start: 20080314
  14. YAZ [Suspect]
     Indication: ORAL CONTRACEPTION
     Route: 048
     Dates: start: 20080301, end: 20080901
  15. LAMICTAL [Concomitant]
     Dates: start: 20080314
  16. TRAZODONE HYDROCHLORIDE [Concomitant]
     Dates: start: 20070801, end: 20090815
  17. IRON [Concomitant]
  18. LAMICTAL [Concomitant]
     Dates: start: 20060701
  19. PRENATAL VITAMINS [VIT C,VIT H,MIN NOS,VIT PP,RETINOL,VIT E,VIT B [Concomitant]
     Dates: start: 20060401
  20. YASMIN [Suspect]
  21. MICROGESTIN 1.5/30 [Concomitant]
     Dosage: 1.5-30 MG
     Route: 065
  22. PERCOCET [Concomitant]

REACTIONS (13)
  - CONSTIPATION [None]
  - DEPRESSION [None]
  - NAUSEA [None]
  - ABDOMINAL TENDERNESS [None]
  - PAIN [None]
  - CHOLELITHIASIS [None]
  - BILIARY DYSKINESIA [None]
  - GALLBLADDER DISORDER [None]
  - SUICIDAL IDEATION [None]
  - ABDOMINAL PAIN UPPER [None]
  - CHOLECYSTITIS CHRONIC [None]
  - GASTROINTESTINAL INJURY [None]
  - WEIGHT DECREASED [None]
